FAERS Safety Report 8879165 (Version 1)
Quarter: 2012Q4

REPORT INFORMATION
  Report Type: Spontaneous
  Country: US (occurrence: None)
  Receive Date: 20121021
  Receipt Date: 20121021
  Transmission Date: 20130627
  Serious: Yes (Other)
  Sender: FDA-Public Use
  Company Number: None

PATIENT
  Sex: Female

DRUGS (1)
  1. DELAFLEX [Suspect]
     Indication: END STAGE RENAL DISEASE (ESRD)
     Dates: start: 20110607

REACTIONS (5)
  - Peritonitis [None]
  - Device connection issue [None]
  - Device breakage [None]
  - Device deployment issue [None]
  - Peritoneal dialysis complication [None]
